FAERS Safety Report 20246308 (Version 2)
Quarter: 2022Q1

REPORT INFORMATION
  Report Type: Report from Study
  Country: CH (occurrence: CH)
  Receive Date: 20211229
  Receipt Date: 20220304
  Transmission Date: 20220423
  Serious: No
  Sender: FDA-Public Use
  Company Number: CH-NOVARTISPH-NVSC2018CH021113

PATIENT
  Sex: Male

DRUGS (6)
  1. GILENYA [Suspect]
     Active Substance: FINGOLIMOD HYDROCHLORIDE
     Indication: Foetal exposure during pregnancy
     Dosage: MATERNAL DOSE: 0.5 MG QD
     Route: 064
     Dates: start: 20170118, end: 20171102
  2. MINERALS\VITAMINS [Concomitant]
     Active Substance: MINERALS\VITAMINS
     Indication: Foetal exposure during pregnancy
     Dosage: MATERNAL DOSE: QD
     Route: 064
     Dates: start: 20171101
  3. MAGNESIUM ASPARTATE [Concomitant]
     Active Substance: MAGNESIUM ASPARTATE
     Indication: Foetal exposure during pregnancy
     Dosage: MATERNAL DOSE: UNKOWN
     Route: 064
  4. TRANEXAMIC ACID [Concomitant]
     Active Substance: TRANEXAMIC ACID
     Indication: Foetal exposure during pregnancy
     Dosage: UNK (MATERNAL DOSE: UNKOWN)
     Route: 064
  5. DAFALGAN [Concomitant]
     Active Substance: ACETAMINOPHEN
     Indication: Foetal exposure during pregnancy
     Dosage: MATERNAL DOSE: 500 MG PRN
     Route: 064
  6. METHYLPREDNISOLONE [Concomitant]
     Active Substance: METHYLPREDNISOLONE
     Indication: Foetal exposure during pregnancy
     Dosage: UNK (MATERNAL DOSE: UNKOWN)
     Route: 064

REACTIONS (1)
  - Foetal exposure during pregnancy [Unknown]
